FAERS Safety Report 6017877-9 (Version None)
Quarter: 2008Q4

REPORT INFORMATION
  Report Type: 
  Country: None (occurrence: None)
  Receive Date: 20081223
  Receipt Date: 20081215
  Transmission Date: 20090506
  Serious: Yes (Life-Threatening)
  Sender: FDA-Public Use
  Company Number: JP-ABBOTT-08P-087-0490908-00

PATIENT
  Age: 60 Year
  Sex: Male

DRUGS (4)
  1. SEVOFLURANE [Suspect]
     Indication: ANAESTHESIA
     Route: 055
  2. VECURONIUM BROMIDE [Concomitant]
     Indication: INDUCTION OF ANAESTHESIA
     Route: 042
  3. MIDAZOLAM [Concomitant]
     Indication: INDUCTION OF ANAESTHESIA
     Route: 042
  4. REMIFENTANIL HYDROCHLORIDE [Concomitant]
     Indication: MAINTENANCE OF ANAESTHESIA
     Route: 042

REACTIONS (1)
  - RHABDOMYOLYSIS [None]
